FAERS Safety Report 16221350 (Version 1)
Quarter: 2019Q2

REPORT INFORMATION
  Report Type: Spontaneous
  Country: DE (occurrence: DE)
  Receive Date: 20190422
  Receipt Date: 20190422
  Transmission Date: 20190711
  Serious: Yes (Hospitalization)
  Sender: FDA-Public Use
  Company Number: DE-TEVA-2019-DE-1039953

PATIENT
  Age: 20 Month
  Sex: Female
  Weight: 12.2 kg

DRUGS (1)
  1. CEFUROXIM [Suspect]
     Active Substance: CEFUROXIME
     Indication: RHINITIS
     Dosage: 8.2 MG /KG
     Route: 042
     Dates: start: 20190401, end: 20190401

REACTIONS (2)
  - Bronchospasm [Recovered/Resolved]
  - Rash generalised [Recovered/Resolved]

NARRATIVE: CASE EVENT DATE: 20190401
